FAERS Safety Report 19894947 (Version 1)
Quarter: 2021Q3

REPORT INFORMATION
  Report Type: Spontaneous
  Country: US (occurrence: US)
  Receive Date: 20210929
  Receipt Date: 20210929
  Transmission Date: 20211014
  Serious: Yes (Hospitalization)
  Sender: FDA-Public Use
  Company Number: US-AVET LIFESCIENCES LTD-2021-AVET-000022

PATIENT
  Age: 38 Year
  Sex: Female

DRUGS (1)
  1. COLISTIMETHATE SODIUM. [Suspect]
     Active Substance: COLISTIMETHATE SODIUM
     Indication: STENOTROPHOMONAS INFECTION
     Dosage: UNK
     Route: 042

REACTIONS (4)
  - Paraesthesia [Recovered/Resolved]
  - Hyporeflexia [Recovered/Resolved]
  - Toxicity to various agents [Recovered/Resolved]
  - Muscular weakness [Recovered/Resolved]
